FAERS Safety Report 4733270-0 (Version None)
Quarter: 2005Q3

REPORT INFORMATION
  Report Type: 
  Country: None (occurrence: None)
  Receive Date: 20050803
  Receipt Date: 20050706
  Transmission Date: 20060218
  Serious: Yes (Death)
  Sender: FDA-Public Use
  Company Number: US-BRISTOL-MYERS SQUIBB COMPANY-13027933

PATIENT
  Age: 73 Year
  Sex: Female

DRUGS (9)
  1. MEGACE [Suspect]
     Indication: ANOREXIA
     Route: 048
     Dates: start: 20041201, end: 20050502
  2. NAVELBINE [Concomitant]
  3. ALOXI [Concomitant]
  4. ARANESP [Concomitant]
  5. CLONIDINE [Concomitant]
     Route: 048
  6. GLIPIZIDE [Concomitant]
     Route: 048
  7. CAPTOPRIL [Concomitant]
     Route: 048
  8. PERIACTIN [Concomitant]
     Route: 048
  9. TYLENOL SINUS [Concomitant]
     Route: 048

REACTIONS (1)
  - MALIGNANT NEOPLASM PROGRESSION [None]
